FAERS Safety Report 8397788-4 (Version None)
Quarter: 2012Q2

REPORT INFORMATION
  Report Type: 
  Country: None (occurrence: None)
  Receive Date: 20120531
  Receipt Date: 20120521
  Transmission Date: 20120825
  Serious: Yes (Hospitalization)
  Sender: FDA-Public Use
  Company Number: US-JNJFOC-20120517728

PATIENT
  Sex: Male
  Weight: 35 kg

DRUGS (1)
  1. REMICADE [Suspect]
     Indication: INFLAMMATORY BOWEL DISEASE
     Route: 042
     Dates: start: 20111230

REACTIONS (3)
  - ABDOMINAL PAIN [None]
  - POST PROCEDURAL COMPLICATION [None]
  - VOMITING [None]
